FAERS Safety Report 9713203 (Version 1)
Quarter: 2013Q4

REPORT INFORMATION
  Report Type: Spontaneous
  Country: US (occurrence: None)
  Receive Date: 20131125
  Receipt Date: 20131125
  Transmission Date: 20140711
  Serious: Yes (Hospitalization)
  Sender: FDA-Public Use
  Company Number: None

PATIENT
  Age: 61 Year
  Sex: Female
  Weight: 55.79 kg

DRUGS (5)
  1. LEXISCAN [Suspect]
     Indication: CARDIAC STRESS TEST
     Route: 042
     Dates: start: 20131014, end: 20131014
  2. ROSUVASTATIN [Concomitant]
  3. ALENDRONATE [Concomitant]
  4. ASPIRIN [Concomitant]
  5. FENOFIBRATE [Concomitant]

REACTIONS (1)
  - Cerebrovascular accident [None]
